FAERS Safety Report 18197323 (Version 1)
Quarter: 2020Q3

REPORT INFORMATION
  Report Type: Spontaneous
  Country: CA (occurrence: CA)
  Receive Date: 20200826
  Receipt Date: 20200826
  Transmission Date: 20201103
  Serious: Yes (Other)
  Sender: FDA-Public Use
  Company Number: CA-ACCORD-197156

PATIENT
  Sex: Female
  Weight: 82 kg

DRUGS (7)
  1. METHOTREXATE. [Suspect]
     Active Substance: METHOTREXATE
     Indication: RHEUMATOID ARTHRITIS
     Route: 065
  2. ARAVA [Suspect]
     Active Substance: LEFLUNOMIDE
     Indication: RHEUMATOID ARTHRITIS
     Route: 065
  3. RITUXIMAB. [Suspect]
     Active Substance: RITUXIMAB
     Indication: RHEUMATOID ARTHRITIS
     Route: 042
  4. ADVIL [Concomitant]
     Active Substance: IBUPROFEN
  5. PREDNISONE. [Concomitant]
     Active Substance: PREDNISONE
  6. ETANERCEPT [Suspect]
     Active Substance: ETANERCEPT
     Indication: RHEUMATOID ARTHRITIS
     Route: 065
  7. DEMEROL [Concomitant]
     Active Substance: MEPERIDINE HYDROCHLORIDE

REACTIONS (2)
  - Treatment failure [Unknown]
  - Rheumatoid arthritis [Unknown]
